FAERS Safety Report 7729048-6 (Version None)
Quarter: 2011Q3

REPORT INFORMATION
  Report Type: 
  Country: None (occurrence: None)
  Receive Date: 20110906
  Receipt Date: 20110826
  Transmission Date: 20111222
  Serious: Yes (Other)
  Sender: FDA-Public Use
  Company Number: US-BAYER-2011-027274

PATIENT
  Age: 19 Year
  Sex: Female
  Weight: 61.224 kg

DRUGS (8)
  1. CELEXA [Concomitant]
     Indication: ANXIETY
  2. ALPRAZOLAM [Concomitant]
     Indication: ANXIETY
  3. YAZ [Suspect]
     Dosage: UNK
     Dates: start: 20080201, end: 20090901
  4. CELEXA [Concomitant]
     Indication: DEPRESSION
     Dosage: UNK
     Dates: start: 20080101
  5. ALPRAZOLAM [Concomitant]
     Indication: DEPRESSION
     Dosage: UNK
     Dates: start: 20080101
  6. OMEPRAZOLE [Concomitant]
     Indication: NAUSEA
     Dosage: UNK
     Dates: start: 20080101
  7. CITALOPRAM [Concomitant]
     Indication: DEPRESSION
     Dosage: UNK
     Dates: start: 20080101
  8. NEXIUM [Concomitant]
     Indication: NAUSEA
     Dosage: UNK
     Dates: start: 20080101, end: 20090101

REACTIONS (8)
  - CHOLECYSTITIS CHRONIC [None]
  - PAIN [None]
  - ANXIETY [None]
  - INJURY [None]
  - ABDOMINAL PAIN [None]
  - EMOTIONAL DISTRESS [None]
  - CHOLECYSTECTOMY [None]
  - GENERAL PHYSICAL HEALTH DETERIORATION [None]
